FAERS Safety Report 14558982 (Version 2)
Quarter: 2018Q1

REPORT INFORMATION
  Report Type: Spontaneous
  Country: AR (occurrence: AR)
  Receive Date: 20180221
  Receipt Date: 20180308
  Transmission Date: 20180509
  Serious: Yes (Death, Hospitalization, Other)
  Sender: FDA-Public Use
  Company Number: AR-BAYER-2018-034541

PATIENT
  Age: 55 Year
  Sex: Female

DRUGS (3)
  1. ULTRAVIST [Suspect]
     Active Substance: IOPROMIDE
     Indication: COMPUTERISED TOMOGRAM ABDOMEN
     Dosage: UNK UNK, ONCE
     Route: 042
     Dates: start: 20180205, end: 20180205
  2. ULTRAVIST [Suspect]
     Active Substance: IOPROMIDE
     Indication: COMPUTERISED TOMOGRAM THORAX
  3. ULTRAVIST [Suspect]
     Active Substance: IOPROMIDE
     Indication: COMPUTERISED TOMOGRAM PELVIS

REACTIONS (7)
  - Death [Fatal]
  - Haemorrhagic stroke [Fatal]
  - Cardiac arrest [None]
  - Contrast media allergy [None]
  - Generalised erythema [None]
  - Hypertensive crisis [Fatal]
  - Hypotension [None]

NARRATIVE: CASE EVENT DATE: 20180205
